FAERS Safety Report 10553524 (Version 1)
Quarter: 2014Q4

REPORT INFORMATION
  Report Type: Spontaneous
  Country: GB (occurrence: None)
  Receive Date: 20141028
  Receipt Date: 20141028
  Transmission Date: 20150529
  Serious: Yes (Life-Threatening)
  Sender: FDA-Public Use
  Company Number: PI-10740

PATIENT

DRUGS (3)
  1. CHLORAPREP [Suspect]
     Active Substance: CHLORHEXIDINE GLUCONATE\ISOPROPYL ALCOHOL
     Indication: PREOPERATIVE CARE
     Dosage: UNKNOWN, ONCE
     Route: 061
     Dates: start: 20141014
  2. ANAESTHESIA [Concomitant]
     Active Substance: UNSPECIFIED INGREDIENT
  3. CHLORAPREP [Suspect]
     Active Substance: CHLORHEXIDINE GLUCONATE\ISOPROPYL ALCOHOL
     Indication: THERAPEUTIC SKIN CARE TOPICAL
     Dosage: UNKNOWN, ONCE
     Route: 061
     Dates: start: 20141014

REACTIONS (1)
  - Anaphylactic reaction [None]

NARRATIVE: CASE EVENT DATE: 20141014
